FAERS Safety Report 17325940 (Version 1)
Quarter: 2020Q1

REPORT INFORMATION
  Report Type: Spontaneous
  Country: PR (occurrence: PR)
  Receive Date: 20200127
  Receipt Date: 20200127
  Transmission Date: 20200409
  Serious: No
  Sender: FDA-Public Use
  Company Number: PR-PFIZER INC-2020032941

PATIENT
  Age: 72 Year
  Sex: Female
  Weight: 94.33 kg

DRUGS (1)
  1. IBRANCE [Suspect]
     Active Substance: PALBOCICLIB
     Indication: BREAST CANCER FEMALE
     Dosage: 100 MG, CYCLIC (1 CAP DAILY 21 DAYS, 7 DAYS OFF)
     Route: 048
     Dates: start: 20191213

REACTIONS (1)
  - Immune system disorder [Unknown]
